FAERS Safety Report 24561639 (Version 3)
Quarter: 2025Q2

REPORT INFORMATION
  Report Type: Report from Study
  Country: US (occurrence: US)
  Receive Date: 20241029
  Receipt Date: 20250422
  Transmission Date: 20250717
  Serious: Yes (Other)
  Sender: AMGEN
  Company Number: US-AMGEN-USASP2024212092

PATIENT
  Sex: Female

DRUGS (3)
  1. PROLIA [Suspect]
     Active Substance: DENOSUMAB
     Indication: Product used for unknown indication
     Route: 065
  2. COVID-19 vaccine [Concomitant]
  3. Measles [Concomitant]
     Dates: start: 202503

REACTIONS (2)
  - Neoplasm malignant [Unknown]
  - Bone disorder [Unknown]
